FAERS Safety Report 7776339-9 (Version None)
Quarter: 2011Q3

REPORT INFORMATION
  Report Type: 
  Country: None (occurrence: None)
  Receive Date: 20110926
  Receipt Date: 20110916
  Transmission Date: 20111222
  Serious: Yes (Hospitalization)
  Sender: FDA-Public Use
  Company Number: FR-JNJFOC-20110813370

PATIENT
  Sex: Male
  Weight: 68 kg

DRUGS (8)
  1. ABIRATERONE ACETATE [Suspect]
     Route: 048
     Dates: start: 20110826, end: 20110915
  2. PREDNISONE [Suspect]
     Indication: PROSTATE CANCER
     Route: 065
  3. ABIRATERONE ACETATE [Suspect]
     Indication: PROSTATE CANCER
     Route: 048
     Dates: start: 20110722, end: 20110821
  4. ELIGARD [Concomitant]
     Route: 065
     Dates: start: 20101124
  5. PREDNISONE [Suspect]
     Indication: PROSTATE CANCER
     Route: 065
  6. ZOMETA [Concomitant]
     Route: 065
     Dates: start: 20110818
  7. ASPIRIN [Concomitant]
     Route: 065
  8. OLMESARTAN MEDOXOMIL [Concomitant]
     Indication: HYPERTENSION
     Route: 065

REACTIONS (1)
  - ANAEMIA [None]
